FAERS Safety Report 5028147-X (Version None)
Quarter: 2006Q2

REPORT INFORMATION
  Report Type: 
  Country: None (occurrence: None)
  Receive Date: 20060613
  Receipt Date: 20060605
  Transmission Date: 20061013
  Serious: Yes (Other)
  Sender: FDA-Public Use
  Company Number: 2006072437

PATIENT
  Age: 87 Year
  Sex: Male
  Weight: 86.1834 kg

DRUGS (7)
  1. ZYRTEC [Suspect]
     Indication: HYPERSENSITIVITY
     Dosage: 10 MG (10 MG, 1 IN 1 D)
     Dates: end: 20060501
  2. ALL OTHER THERAPEUTIC PRODUCTS (ALL OTHER THERAPEUTIC PRODUCTS) [Concomitant]
  3. ALBUTEROL [Concomitant]
  4. FLONASE [Concomitant]
  5. AVANDIA [Concomitant]
  6. COZAAR [Concomitant]
  7. LIPITOR [Concomitant]

REACTIONS (4)
  - BENIGN PROSTATIC HYPERPLASIA [None]
  - CONDITION AGGRAVATED [None]
  - HYPERSENSITIVITY [None]
  - MICTURITION URGENCY [None]
